FAERS Safety Report 16910797 (Version 6)
Quarter: 2021Q2

REPORT INFORMATION
  Report Type: Report from Study
  Country: US (occurrence: US)
  Receive Date: 20191012
  Receipt Date: 20210417
  Transmission Date: 20210716
  Serious: No
  Sender: FDA-Public Use
  Company Number: US-SHIRE-US201933720

PATIENT
  Sex: Female
  Weight: 90.7 kg

DRUGS (29)
  1. LIDOCAINE. [Concomitant]
     Active Substance: LIDOCAINE
     Route: 065
  2. SOLU?MEDROL [Concomitant]
     Active Substance: METHYLPREDNISOLONE SODIUM SUCCINATE
     Route: 065
  3. DULOXETINE. [Concomitant]
     Active Substance: DULOXETINE
     Route: 065
  4. TRAMADOL HCL [Concomitant]
     Active Substance: TRAMADOL HYDROCHLORIDE
     Route: 065
  5. DULOXETINE HCL [Concomitant]
     Active Substance: DULOXETINE HYDROCHLORIDE
     Route: 065
  6. DIPHENHYDRAMINE. [Concomitant]
     Active Substance: DIPHENHYDRAMINE
     Route: 065
  7. SODIUM CHLORIDE. [Concomitant]
     Active Substance: SODIUM CHLORIDE
     Route: 065
  8. SENOKOT [Concomitant]
     Active Substance: SENNOSIDES
     Route: 065
  9. HUMAN NORMAL IMMUNOGLOBULIN; LIQUID [Suspect]
     Active Substance: HUMAN IMMUNOGLOBULIN G
     Dosage: 90 GRAM, DIVIDED OVER 2 DAYS EVERY 3 WK
     Route: 042
     Dates: start: 20140307
  10. ACETAMINOPHEN. [Concomitant]
     Active Substance: ACETAMINOPHEN
     Route: 065
  11. MYRBETRIQ [Concomitant]
     Active Substance: MIRABEGRON
     Route: 065
  12. PANTOPRAZOLE SODIUM. [Concomitant]
     Active Substance: PANTOPRAZOLE SODIUM
     Route: 065
  13. CLONAZEPAM. [Concomitant]
     Active Substance: CLONAZEPAM
     Route: 065
  14. BENADRYL [Concomitant]
     Active Substance: DIPHENHYDRAMINE HYDROCHLORIDE
     Dosage: UNK
     Route: 065
  15. PERCOCET [OXYCODONE HYDROCHLORIDE;OXYCODONE TEREPHTHALATE;PARACETAMOL] [Concomitant]
     Active Substance: ACETAMINOPHEN\OXYCODONE HYDROCHLORIDE\OXYCODONE TEREPHTHALATE
     Route: 065
  16. HUMAN NORMAL IMMUNOGLOBULIN; LIQUID [Suspect]
     Active Substance: HUMAN IMMUNOGLOBULIN G
     Dosage: 90 GRAM, Q3WEEKS
     Route: 042
     Dates: start: 20131126
  17. PANTOPRAZOLE [Concomitant]
     Active Substance: PANTOPRAZOLE
     Route: 065
  18. LORATADINE. [Concomitant]
     Active Substance: LORATADINE
     Route: 065
  19. POTASSIUM CHLORIDE. [Concomitant]
     Active Substance: POTASSIUM CHLORIDE
     Route: 065
  20. NORMAL SALINE [Concomitant]
     Active Substance: SODIUM CHLORIDE
     Route: 065
  21. HEPARIN [Concomitant]
     Active Substance: HEPARIN SODIUM
     Route: 065
  22. DOCUSATE [Concomitant]
     Active Substance: DOCUSATE
     Route: 065
  23. LMX [Concomitant]
     Route: 065
  24. MACROBID [CLARITHROMYCIN] [Concomitant]
     Active Substance: CLARITHROMYCIN
     Route: 065
  25. EPINEPHRINE. [Concomitant]
     Active Substance: EPINEPHRINE
     Route: 065
  26. MIRALAX [Concomitant]
     Active Substance: POLYETHYLENE GLYCOL 3350
     Route: 065
  27. GABAPENTIN. [Concomitant]
     Active Substance: GABAPENTIN
     Route: 065
  28. HUMAN NORMAL IMMUNOGLOBULIN; LIQUID [Suspect]
     Active Substance: HUMAN IMMUNOGLOBULIN G
     Indication: CHRONIC INFLAMMATORY DEMYELINATING POLYRADICULONEUROPATHY
     Dosage: 100 GRAM, EVERY 3 WK
     Route: 042
     Dates: start: 20131113
  29. TOVIAZ [Concomitant]
     Active Substance: FESOTERODINE FUMARATE
     Route: 065

REACTIONS (7)
  - Asthenia [Recovering/Resolving]
  - Infusion related reaction [Recovered/Resolved]
  - Headache [Recovered/Resolved]
  - Incorrect drug administration rate [Unknown]
  - Pain [Unknown]
  - Fatigue [Unknown]
  - Sensory loss [Unknown]
